APPROVED DRUG PRODUCT: SAMSCA
Active Ingredient: TOLVAPTAN
Strength: 60MG **Federal Register determination that product was not discontinued or withdrawn for safety or effectiveness reasons**
Dosage Form/Route: TABLET;ORAL
Application: N022275 | Product #003
Applicant: OTSUKA PHARMACEUTICAL CO LTD
Approved: May 19, 2009 | RLD: Yes | RS: No | Type: DISCN

PATENTS:
Patent 10905694 | Expires: Apr 7, 2030
Patent 8501730 | Expires: Sep 1, 2026